FAERS Safety Report 5139261-2 (Version None)
Quarter: 2006Q4

REPORT INFORMATION
  Report Type: 
  Country: None (occurrence: None)
  Receive Date: 20061026
  Receipt Date: 20061026
  Transmission Date: 20070319
  Serious: Yes (Hospitalization)
  Sender: FDA-Public Use
  Company Number: None

PATIENT
  Sex: Male

DRUGS (1)
  1. PHENYTOIN EXTENDED   100MG      MYLAN PHARMACEUTICALS [Suspect]
     Indication: EPILEPSY
     Dosage: 6 X 100MG    BEDTIME DAILY  PO
     Route: 048
     Dates: start: 20050923, end: 20061024

REACTIONS (5)
  - CONDITION AGGRAVATED [None]
  - CONVULSION [None]
  - DRUG DOSE OMISSION [None]
  - DRUG LEVEL CHANGED [None]
  - POOR QUALITY DRUG ADMINISTERED [None]
